FAERS Safety Report 4297020-7 (Version None)
Quarter: 2004Q1

REPORT INFORMATION
  Report Type: 
  Country: None (occurrence: None)
  Receive Date: 20040213
  Receipt Date: 20040203
  Transmission Date: 20041129
  Serious: Yes (Other)
  Sender: FDA-Public Use
  Company Number: FR-JNJFOC-20040100965

PATIENT
  Age: 69 Year
  Sex: Male

DRUGS (6)
  1. REMICADE [Suspect]
     Indication: RHEUMATOID ARTHRITIS
     Dosage: INTRAVENOUS
     Route: 042
     Dates: start: 20000615, end: 20031118
  2. METHOTREXATE [Suspect]
     Dosage: ORAL
     Route: 048
     Dates: end: 20031118
  3. TILCOTIL (TENOXICAM) [Concomitant]
  4. VITAMIN D3 (COLECALCIFEROL) [Concomitant]
  5. OMEPRAZOLE [Concomitant]
  6. PREDNISONE [Suspect]
     Dosage: ORAL
     Route: 048

REACTIONS (6)
  - ABSCESS [None]
  - INJURY [None]
  - NOCARDIOSIS [None]
  - SUBCUTANEOUS NODULE [None]
  - VISUAL ACUITY REDUCED [None]
  - WOUND [None]
